FAERS Safety Report 24246271 (Version 1)
Quarter: 2024Q3

REPORT INFORMATION
  Report Type: Spontaneous
  Country: US (occurrence: US)
  Receive Date: 20240825
  Receipt Date: 20240825
  Transmission Date: 20241017
  Serious: Yes (Other)
  Sender: GLENMARK
  Company Number: US-GLENMARK PHARMACEUTICALS-2024GMK093363

PATIENT

DRUGS (3)
  1. GABAPENTIN [Suspect]
     Active Substance: GABAPENTIN
     Indication: Product used for unknown indication
     Dosage: UNK
     Route: 065
  2. TARPEYO [Suspect]
     Active Substance: BUDESONIDE
     Indication: IgA nephropathy
     Dosage: 16 MILLIGRAM OD
     Route: 048
     Dates: start: 20240503
  3. TARPEYO [Suspect]
     Active Substance: BUDESONIDE
     Indication: Haematuria

REACTIONS (18)
  - Burning sensation [Unknown]
  - Sciatica [Unknown]
  - Oral pain [Unknown]
  - Oropharyngeal pain [Unknown]
  - Crying [Unknown]
  - Dysphonia [Unknown]
  - Throat irritation [Unknown]
  - Energy increased [Unknown]
  - Emotional disorder [Unknown]
  - Anger [Unknown]
  - Thirst [Unknown]
  - Eructation [Unknown]
  - Gait disturbance [Unknown]
  - Hallucination [Unknown]
  - Arthralgia [Unknown]
  - Dry mouth [Unknown]
  - Vomiting [Unknown]
  - Dyspepsia [Unknown]
